FAERS Safety Report 8508251 (Version 4)
Quarter: 2012Q4

REPORT INFORMATION
  Report Type: 
  Country: US (occurrence: US)
  Receive Date: 20120412
  Receipt Date: 20121105
  Transmission Date: 20130627
  Serious: Yes (Other)
  Sender: FDA-Public Use
  Company Number: US-ASTRAZENECA-2011SE37839

PATIENT
  Age: 70 Year
  Sex: Female

DRUGS (2)
  1. NEXIUM [Suspect]
     Route: 048
  2. PRILOSEC OTC [Suspect]
     Route: 048

REACTIONS (14)
  - Neoplasm malignant [Unknown]
  - Gastrooesophageal reflux disease [Unknown]
  - Aphagia [Unknown]
  - Chest pain [Unknown]
  - Aphonia [Unknown]
  - Pharyngeal disorder [Unknown]
  - Pain [Unknown]
  - Stress [Unknown]
  - Dyspnoea [Unknown]
  - Sensation of foreign body [Unknown]
  - Malaise [Unknown]
  - Vomiting [Unknown]
  - Feeling abnormal [Unknown]
  - Drug dose omission [Unknown]
